FAERS Safety Report 22260336 (Version 1)
Quarter: 2023Q2

REPORT INFORMATION
  Report Type: Report from Study
  Country: US (occurrence: US)
  Receive Date: 20230427
  Receipt Date: 20230427
  Transmission Date: 20230721
  Serious: No
  Sender: FDA-Public Use
  Company Number: US-BIOVITRUM-2023-US-006148

PATIENT
  Age: 68 Year
  Sex: Female

DRUGS (1)
  1. KINERET [Suspect]
     Active Substance: ANAKINRA
     Indication: Rheumatoid arthritis
     Dosage: TWICE DAILY?ONCE DAILY
     Route: 058
     Dates: start: 20230127

REACTIONS (4)
  - Injection site pain [Unknown]
  - Bronchitis [Unknown]
  - Cough [Unknown]
  - Skin exfoliation [Unknown]
